APPROVED DRUG PRODUCT: PANTOPRAZOLE SODIUM
Active Ingredient: PANTOPRAZOLE SODIUM
Strength: EQ 40MG BASE/VIAL
Dosage Form/Route: POWDER;INTRAVENOUS
Application: N209463 | Product #001 | TE Code: AP
Applicant: HIKMA PHARMACEUTICALS LLC
Approved: Jun 30, 2017 | RLD: Yes | RS: Yes | Type: RX